FAERS Safety Report 10384649 (Version 1)
Quarter: 2014Q3

REPORT INFORMATION
  Report Type: Spontaneous
  Country: US (occurrence: US)
  Receive Date: 20140814
  Receipt Date: 20140814
  Transmission Date: 20150326
  Serious: Yes (Death, Other)
  Sender: FDA-Public Use
  Company Number: US-CELGENEUS-163-50794-14081685

PATIENT
  Age: 51 Year
  Sex: Female

DRUGS (1)
  1. VIDAZA [Suspect]
     Active Substance: AZACITIDINE
     Indication: MYELODYSPLASTIC SYNDROME
     Route: 065

REACTIONS (7)
  - Subarachnoid haemorrhage [Unknown]
  - Hydrocephalus [Unknown]
  - Enterococcal bacteraemia [Unknown]
  - Lung infiltration [Unknown]
  - Death [Fatal]
  - Respiratory failure [Unknown]
  - Pancytopenia [Unknown]
